FAERS Safety Report 5226631-7 (Version None)
Quarter: 2007Q1

REPORT INFORMATION
  Report Type: 
  Country: None (occurrence: None)
  Receive Date: 20070201
  Receipt Date: 20070125
  Transmission Date: 20070707
  Serious: Yes (Hospitalization, Other)
  Sender: FDA-Public Use
  Company Number: US-PFIZER INC-2007007232

PATIENT
  Sex: Female
  Weight: 101.6 kg

DRUGS (13)
  1. LYRICA [Suspect]
     Indication: NERVE INJURY
  2. ASPIRIN [Concomitant]
  3. PLAVIX [Concomitant]
  4. ATENOLOL [Concomitant]
  5. CELEBREX [Concomitant]
  6. LASIX [Concomitant]
  7. NITRGLYCERIN TRANSDERMAL SYSTEM [Concomitant]
  8. PLENDIL [Concomitant]
  9. POTASSIUM ACETATE [Concomitant]
  10. PRAVACHOL [Concomitant]
  11. TIKOSYN [Concomitant]
  12. ZETIA [Concomitant]
  13. TYLENOL [Concomitant]

REACTIONS (2)
  - FLUID RETENTION [None]
  - STENT PLACEMENT [None]
